FAERS Safety Report 4561509-3 (Version None)
Quarter: 2005Q1

REPORT INFORMATION
  Report Type: 
  Country: None (occurrence: None)
  Receive Date: 20050121
  Receipt Date: 20040219
  Transmission Date: 20050727
  Serious: Yes (Other)
  Sender: FDA-Public Use
  Company Number: 200401255

PATIENT
  Age: 39 Year
  Sex: Female

DRUGS (1)
  1. TAZORAC [Suspect]
     Indication: ACNE
     Dates: start: 20040106

REACTIONS (2)
  - ABORTION SPONTANEOUS [None]
  - DRUG EXPOSURE DURING PREGNANCY [None]
